FAERS Safety Report 19821403 (Version 1)
Quarter: 2021Q3

REPORT INFORMATION
  Report Type: Spontaneous
  Country: US (occurrence: US)
  Receive Date: 20210909
  Receipt Date: 20210909
  Transmission Date: 20211014
  Serious: No
  Sender: FDA-Public Use
  Company Number: None

PATIENT
  Age: 84 Year
  Sex: Female
  Weight: 102.06 kg

DRUGS (8)
  1. BACLOFEN. [Concomitant]
     Active Substance: BACLOFEN
  2. FUROSAMIDE [Concomitant]
     Active Substance: FUROSEMIDE
  3. MAGNESIUM CITRATE. [Concomitant]
     Active Substance: MAGNESIUM CITRATE
  4. VITAMIN D3 [Concomitant]
     Active Substance: CHOLECALCIFEROL
  5. VITAMIN B12 [Concomitant]
     Active Substance: CYANOCOBALAMIN
  6. TURMERIC [Concomitant]
     Active Substance: HERBALS\TURMERIC
  7. ALENDRONATE 70MG [Suspect]
     Active Substance: ALENDRONATE SODIUM
     Indication: OSTEOPENIA
     Dosage: ?          QUANTITY:1 DF DOSAGE FORM;?
     Route: 048
     Dates: start: 201711, end: 202105
  8. DULOXETINE HCL EC [Concomitant]

REACTIONS (4)
  - Jaw disorder [None]
  - Jaw fracture [None]
  - Osteonecrosis [None]
  - Pain in jaw [None]

NARRATIVE: CASE EVENT DATE: 20210301
